FAERS Safety Report 11693241 (Version 1)
Quarter: 2015Q4

REPORT INFORMATION
  Report Type: Spontaneous
  Country: CN (occurrence: CN)
  Receive Date: 20151103
  Receipt Date: 20151103
  Transmission Date: 20160304
  Serious: Yes (Other)
  Sender: FDA-Public Use
  Company Number: CN-PFIZER INC-2015366452

PATIENT
  Age: 45 Year
  Sex: Male

DRUGS (1)
  1. CELEBREX [Suspect]
     Active Substance: CELECOXIB
     Indication: CONTUSION
     Dosage: 200 MG, 2X/DAY
     Route: 048
     Dates: start: 20150413, end: 20150413

REACTIONS (5)
  - Rash generalised [Recovering/Resolving]
  - Obstructive airways disorder [Recovering/Resolving]
  - Face oedema [Recovering/Resolving]
  - Dyspnoea [Recovering/Resolving]
  - Eyelid oedema [Recovering/Resolving]
